FAERS Safety Report 17557770 (Version 1)
Quarter: 2020Q1

REPORT INFORMATION
  Report Type: Spontaneous
  Country: US (occurrence: US)
  Receive Date: 20200319
  Receipt Date: 20200319
  Transmission Date: 20200409
  Serious: No
  Sender: FDA-Public Use
  Company Number: US-ASTRAZENECA-2020SE37672

PATIENT
  Sex: Male
  Weight: 9.9 kg

DRUGS (8)
  1. SYNAGIS [Suspect]
     Active Substance: PALIVIZUMAB
     Indication: HEART DISEASE CONGENITAL
     Dosage: 15 MG/KG MONTHLY (STRENGTH: 50MG/0.5ML)
     Route: 030
     Dates: start: 20191111
  2. SYNAGIS [Suspect]
     Active Substance: PALIVIZUMAB
     Indication: PREMATURE BABY
     Dosage: 15 MG/KG MONTHLY (STRENGTH: 50MG/0.5ML)
     Route: 030
     Dates: start: 20191111
  3. FAMOTIDINE. [Concomitant]
     Active Substance: FAMOTIDINE
  4. SYNAGIS [Suspect]
     Active Substance: PALIVIZUMAB
     Indication: CONGENITAL HIGH AIRWAY OBSTRUCTION SYNDROME
     Dosage: 15 MG/KG MONTHLY (STRENGTH: 50MG/0.5ML)
     Route: 030
     Dates: start: 20191111
  5. LEVOTHYROXINE SODIUM. [Concomitant]
     Active Substance: LEVOTHYROXINE SODIUM
  6. CAROSPIR [Concomitant]
     Active Substance: SPIRONOLACTONE
     Route: 048
  7. OMEPRZOLE [Suspect]
     Active Substance: OMEPRAZOLE
     Dosage: UNKNOWN
     Route: 048
  8. BUMETANIDE. [Concomitant]
     Active Substance: BUMETANIDE

REACTIONS (1)
  - Respiratory syncytial virus test positive [Unknown]
